FAERS Safety Report 24034480 (Version 2)
Quarter: 2024Q3

REPORT INFORMATION
  Report Type: Report from Study
  Country: SA (occurrence: SA)
  Receive Date: 20240701
  Receipt Date: 20240710
  Transmission Date: 20241016
  Serious: No
  Sender: ROCHE
  Company Number: SA-ROCHE-3375801

PATIENT
  Age: 7 Year
  Sex: Male
  Weight: 19.5 kg

DRUGS (3)
  1. EVRYSDI [Suspect]
     Active Substance: RISDIPLAM
     Indication: Spinal muscular atrophy
     Route: 048
     Dates: start: 20230606
  2. EVRYSDI [Suspect]
     Active Substance: RISDIPLAM
     Route: 048
  3. EVRYSDI [Suspect]
     Active Substance: RISDIPLAM
     Route: 048

REACTIONS (4)
  - Incorrect dose administered [Unknown]
  - No adverse event [Unknown]
  - Product dose omission issue [Unknown]
  - Drug monitoring procedure incorrectly performed [Unknown]

NARRATIVE: CASE EVENT DATE: 20230606
